FAERS Safety Report 15498512 (Version 1)
Quarter: 2018Q4

REPORT INFORMATION
  Report Type: Report from Study
  Country: DE (occurrence: DE)
  Receive Date: 20181015
  Receipt Date: 20181015
  Transmission Date: 20190205
  Serious: Yes (Hospitalization, Other)
  Sender: FDA-Public Use
  Company Number: DE-MYLANLABS-2018M1074943

PATIENT
  Age: 60 Year
  Sex: Male
  Weight: 95 kg

DRUGS (56)
  1. IRINOTECAN [Suspect]
     Active Substance: IRINOTECAN
     Dosage: 360 MG, QW
     Route: 042
     Dates: start: 20171016, end: 20171016
  2. FLUOROURACIL. [Suspect]
     Active Substance: FLUOROURACIL
     Dosage: UNK
  3. 5-FLUOROURACIL                     /00098801/ [Suspect]
     Active Substance: FLUOROURACIL
     Dosage: 6400 MG, UNK
     Route: 041
     Dates: start: 20170410, end: 20170412
  4. 5-FLUOROURACIL                     /00098801/ [Suspect]
     Active Substance: FLUOROURACIL
     Dosage: 6400 MG, UNK
     Route: 040
     Dates: start: 20171001, end: 20171004
  5. 5-FLUOROURACIL                     /00098801/ [Suspect]
     Active Substance: FLUOROURACIL
     Dosage: 800 MG, UNK
     Route: 040
  6. FOLINIC ACID [Suspect]
     Active Substance: LEUCOVORIN
     Indication: COLORECTAL CANCER
     Dosage: 800 MG, Q2W
     Route: 042
     Dates: start: 20160704, end: 20170410
  7. FOLINIC ACID [Suspect]
     Active Substance: LEUCOVORIN
     Dosage: 800 MG, UNK
     Route: 042
     Dates: start: 20160704, end: 20170410
  8. RAMIPRIL. [Concomitant]
     Active Substance: RAMIPRIL
     Dosage: UNK
  9. ONDANSETRON [Suspect]
     Active Substance: ONDANSETRON
     Indication: PROPHYLAXIS OF NAUSEA AND VOMITING
     Dosage: 8 MG, Q2W
     Route: 042
     Dates: start: 20170116
  10. IRINOTECAN [Suspect]
     Active Substance: IRINOTECAN
     Indication: COLORECTAL CANCER
     Dosage: 360 MG, Q2W (2X A WEEK,0.5 WEEK)
     Route: 042
     Dates: start: 20160704, end: 20161205
  11. AVASTIN [Suspect]
     Active Substance: BEVACIZUMAB
     Indication: COLORECTAL CANCER METASTATIC
     Dosage: 475 MG, UNK
     Route: 042
  12. AVASTIN [Suspect]
     Active Substance: BEVACIZUMAB
     Dosage: 500 MG, UNK
     Route: 042
     Dates: start: 20171002
  13. AVASTIN [Suspect]
     Active Substance: BEVACIZUMAB
     Dosage: 500 MG, Q2W
     Route: 042
  14. FLUOROURACIL. [Suspect]
     Active Substance: FLUOROURACIL
     Dosage: 800 MG, UNK
     Route: 042
  15. 5-FLUOROURACIL                     /00098801/ [Suspect]
     Active Substance: FLUOROURACIL
     Dosage: 800 MG, UNK
     Route: 040
  16. 5-FLUOROURACIL                     /00098801/ [Suspect]
     Active Substance: FLUOROURACIL
     Dosage: 4800-6400 MG
     Route: 042
  17. 5-FLUOROURACIL                     /00098801/ [Suspect]
     Active Substance: FLUOROURACIL
     Indication: COLORECTAL CANCER METASTATIC
     Dosage: 1 UNK, UNK,
     Route: 041
     Dates: start: 20160704
  18. 5-FLUOROURACIL                     /00098801/ [Suspect]
     Active Substance: FLUOROURACIL
     Dosage: 6400 MG, Q2W
     Route: 041
     Dates: start: 20170410, end: 20170412
  19. 5-FLUOROURACIL                     /00098801/ [Suspect]
     Active Substance: FLUOROURACIL
     Dosage: 6400 MG, UNK
     Route: 040
  20. RAMIPRIL. [Concomitant]
     Active Substance: RAMIPRIL
     Indication: HYPERTENSION
     Dosage: 2.5 MG, QD
     Route: 048
     Dates: start: 20170410
  21. AVASTIN [Suspect]
     Active Substance: BEVACIZUMAB
     Dosage: 950 MG, QW ( (475 MG,2X A WEEK)
     Route: 042
     Dates: start: 20160704
  22. FLUOROURACIL. [Suspect]
     Active Substance: FLUOROURACIL
     Dosage: 6400 MG, Q2W
     Route: 042
     Dates: start: 20170410, end: 20170412
  23. 5-FLUOROURACIL                     /00098801/ [Suspect]
     Active Substance: FLUOROURACIL
     Indication: COLORECTAL CANCER
     Dosage: 800 MG, Q2W (BOLUS)
     Route: 042
     Dates: start: 20160704, end: 20161205
  24. RIVAROXABAN [Suspect]
     Active Substance: RIVAROXABAN
     Indication: DEEP VEIN THROMBOSIS
     Dosage: 20 MG, 1X/DAY:QD
     Route: 048
     Dates: start: 20170524
  25. METOCLOPRAMIDE. [Concomitant]
     Active Substance: METOCLOPRAMIDE
     Indication: PRODUCT USED FOR UNKNOWN INDICATION
     Route: 048
  26. DEXAMETHASON                       /00016001/ [Concomitant]
     Active Substance: DEXAMETHASONE
     Dosage: 12 MG, Q2W
     Route: 042
     Dates: start: 20170116
  27. 5-FLUOROURACIL                     /00098801/ [Concomitant]
     Active Substance: FLUOROURACIL
     Indication: COLORECTAL CANCER
     Dosage: 4800-6400 MG
     Route: 041
     Dates: start: 20160704
  28. ONDANSETRON [Suspect]
     Active Substance: ONDANSETRON
     Dosage: 8 MG, UNK
     Route: 042
  29. BEVACIZUMAB. [Suspect]
     Active Substance: BEVACIZUMAB
     Dosage: 475 UNK, UNK
     Route: 042
     Dates: start: 20160704, end: 20160704
  30. FLUOROURACIL. [Suspect]
     Active Substance: FLUOROURACIL
     Dosage: 4800 MG, UNK
     Route: 042
     Dates: start: 20171016, end: 20171018
  31. FOLINIC ACID [Suspect]
     Active Substance: LEUCOVORIN
     Dosage: 800 MG, UNK
     Route: 042
  32. MCP [Concomitant]
     Active Substance: METOCLOPRAMIDE HYDROCHLORIDE
     Indication: PRODUCT USED FOR UNKNOWN INDICATION
     Dosage: UNK
     Route: 048
  33. EMEND [Concomitant]
     Active Substance: APREPITANT
     Indication: PROPHYLAXIS OF NAUSEA AND VOMITING
     Dosage: 125/80MG
     Route: 048
  34. EMEND [Concomitant]
     Active Substance: APREPITANT
     Dosage: 205 MG, UNK
  35. IRINOTECAN [Suspect]
     Active Substance: IRINOTECAN
     Indication: COLORECTAL CANCER METASTATIC
     Dosage: 720 MG, QW
     Route: 042
     Dates: start: 20171016, end: 20171016
  36. 5-FLUOROURACIL                     /00098801/ [Suspect]
     Active Substance: FLUOROURACIL
     Dosage: 6400 MG, UNK
     Route: 042
     Dates: start: 20171002, end: 20171004
  37. 5-FLUOROURACIL                     /00098801/ [Suspect]
     Active Substance: FLUOROURACIL
     Dosage: 4800 MG, UNK
     Route: 042
     Dates: start: 20171016, end: 20171016
  38. 5-FLUOROURACIL                     /00098801/ [Suspect]
     Active Substance: FLUOROURACIL
     Dosage: 12800 MG, QW (6400 MG, 2X A WEEK)
     Dates: start: 20171002
  39. FOLINIC ACID [Suspect]
     Active Substance: LEUCOVORIN
     Dosage: 800 MG, UNK
     Route: 065
     Dates: start: 20171016, end: 20171016
  40. AVASTIN [Suspect]
     Active Substance: BEVACIZUMAB
     Dosage: 1000 MG, QW (500 MG,2X A WEEK)UNK
     Route: 042
     Dates: start: 20171016
  41. BEVACIZUMAB. [Suspect]
     Active Substance: BEVACIZUMAB
     Dosage: 500 MG, UNK
     Route: 042
     Dates: start: 20171002, end: 20171002
  42. 5-FLUOROURACIL                     /00098801/ [Suspect]
     Active Substance: FLUOROURACIL
     Dosage: 12800 MG, Q2W (6400 MG, 2X A WEEK)UNK
     Route: 042
     Dates: start: 20170410
  43. DEXAMETHASON                       /00016001/ [Concomitant]
     Active Substance: DEXAMETHASONE
     Indication: PROPHYLAXIS OF NAUSEA AND VOMITING
     Dosage: 8 MG, Q2W
     Route: 042
     Dates: start: 20160604, end: 20161206
  44. NOVALGIN                           /00169801/ [Concomitant]
     Active Substance: ACETAMINOPHEN\CAFFEINE\PROPYPHENAZONE
     Indication: ANALGESIC THERAPY
     Dosage: UNK
     Route: 048
  45. 5-FLUOROURACIL                     /00098801/ [Concomitant]
     Active Substance: FLUOROURACIL
     Dosage: 6400 MG, Q2W
     Route: 041
     Dates: start: 20170410, end: 20170412
  46. AVASTIN [Suspect]
     Active Substance: BEVACIZUMAB
     Dosage: 500 MG, UNK
     Route: 042
  47. BEVACIZUMAB. [Suspect]
     Active Substance: BEVACIZUMAB
     Indication: COLORECTAL CANCER METASTATIC
     Dosage: 500 MG, UNK
     Route: 042
     Dates: start: 20171016
  48. FLUOROURACIL. [Suspect]
     Active Substance: FLUOROURACIL
     Indication: COLORECTAL CANCER
     Dosage: 800 MG, Q2W
     Route: 040
     Dates: start: 20160704, end: 20161205
  49. 5-FLUOROURACIL                     /00098801/ [Suspect]
     Active Substance: FLUOROURACIL
     Dosage: BOLUS
     Route: 042
  50. 5-FLUOROURACIL                     /00098801/ [Suspect]
     Active Substance: FLUOROURACIL
     Dosage: 6400 MG, UNK
  51. PALONOSETRON. [Suspect]
     Active Substance: PALONOSETRON HYDROCHLORIDE
     Indication: PROPHYLAXIS OF NAUSEA AND VOMITING
     Dosage: UNK
     Route: 065
     Dates: start: 20171030
  52. IRINOTECAN [Suspect]
     Active Substance: IRINOTECAN
     Dosage: 360 MG, UNK
     Route: 042
  53. 5-FLUOROURACIL                     /00098801/ [Suspect]
     Active Substance: FLUOROURACIL
     Indication: COLORECTAL CANCER METASTATIC
     Dosage: 4800 MG, UNK
     Route: 042
     Dates: start: 20170216, end: 20170218
  54. 5-FLUOROURACIL                     /00098801/ [Suspect]
     Active Substance: FLUOROURACIL
     Dosage: 4800-6400 MG
     Route: 041
     Dates: start: 20160704
  55. 5-FLUOROURACIL                     /00098801/ [Suspect]
     Active Substance: FLUOROURACIL
     Dosage: 4800 MG, UNK
     Route: 042
  56. FOLINIC ACID [Suspect]
     Active Substance: LEUCOVORIN
     Dosage: UNK MG, UNK
     Route: 042

REACTIONS (7)
  - Haematochezia [Recovered/Resolved]
  - Vomiting [Recovered/Resolved]
  - Paraesthesia [Recovered/Resolved]
  - Nausea [Recovered/Resolved with Sequelae]
  - Deep vein thrombosis [Recovered/Resolved with Sequelae]
  - Off label use [Unknown]
  - Constipation [Recovered/Resolved]

NARRATIVE: CASE EVENT DATE: 20170422
